FAERS Safety Report 11877551 (Version 5)
Quarter: 2018Q1

REPORT INFORMATION
  Report Type: Report from Study
  Country: US (occurrence: US)
  Receive Date: 20151230
  Receipt Date: 20180223
  Transmission Date: 20180508
  Serious: Yes (Other)
  Sender: FDA-Public Use
  Company Number: PHHY2015US070821

PATIENT
  Age: 40 Year
  Sex: Female

DRUGS (2)
  1. GILENYA [Suspect]
     Active Substance: FINGOLIMOD HYDROCHLORIDE
     Indication: MULTIPLE SCLEROSIS
     Dosage: UNK, QD
     Route: 048
  2. MULTI VIT [Concomitant]
     Indication: PRODUCT USED FOR UNKNOWN INDICATION
     Dosage: UNK
     Route: 065
     Dates: start: 20171106

REACTIONS (15)
  - Alanine aminotransferase increased [Recovered/Resolved]
  - Balance disorder [Unknown]
  - Vision blurred [Unknown]
  - Hypertension [Unknown]
  - Mood altered [Unknown]
  - Constipation [Unknown]
  - Paraesthesia [Unknown]
  - Disturbance in attention [Unknown]
  - Menorrhagia [Unknown]
  - Blindness [Unknown]
  - Fatigue [Unknown]
  - Micturition urgency [Unknown]
  - Hypoaesthesia [Unknown]
  - Anxiety [Unknown]
  - Cognitive disorder [Unknown]

NARRATIVE: CASE EVENT DATE: 20150101
